FAERS Safety Report 10155696 (Version 3)
Quarter: 2014Q2

REPORT INFORMATION
  Report Type: Spontaneous
  Country: US (occurrence: US)
  Receive Date: 20140506
  Receipt Date: 20140624
  Transmission Date: 20141212
  Serious: Yes (Death, Hospitalization, Other)
  Sender: FDA-Public Use
  Company Number: US-009507513-1405USA002884

PATIENT
  Sex: Male
  Weight: 102.4 kg

DRUGS (1)
  1. JANUVIA [Suspect]
     Indication: TYPE 2 DIABETES MELLITUS
     Dosage: 100 MG, QD
     Route: 048
     Dates: start: 20070525, end: 20120921

REACTIONS (25)
  - Cholangiocarcinoma [Fatal]
  - Pancreatic carcinoma metastatic [Fatal]
  - Malignant pleural effusion [Fatal]
  - Cerebrovascular accident [Unknown]
  - Metastases to liver [Unknown]
  - Shock [Unknown]
  - Sepsis [Unknown]
  - Ulcer [Unknown]
  - Gastrooesophageal reflux disease [Unknown]
  - Hypertension [Unknown]
  - Cerebrovascular disorder [Unknown]
  - Eructation [Unknown]
  - Pleural effusion [Unknown]
  - Pulmonary mass [Unknown]
  - Nephrolithiasis [Unknown]
  - Obstruction gastric [Unknown]
  - Anaemia [Unknown]
  - Atrial flutter [Unknown]
  - Aortic stenosis [Unknown]
  - Polyuria [Unknown]
  - Wheezing [Unknown]
  - Platelet count decreased [Unknown]
  - Pneumothorax [Unknown]
  - Pleural effusion [Unknown]
  - Blood glucose decreased [Unknown]
